FAERS Safety Report 5528964-3 (Version None)
Quarter: 2007Q4

REPORT INFORMATION
  Report Type: 
  Country: None (occurrence: None)
  Receive Date: 20071109
  Receipt Date: 20070226
  Transmission Date: 20080405
  Serious: Yes (Hospitalization, Disabling, Other)
  Sender: FDA-Public Use
  Company Number: PHEH2004US07664

PATIENT
  Age: 60 Year
  Sex: Female
  Weight: 85.7 kg

DRUGS (6)
  1. ESTRADERM [Suspect]
     Indication: HORMONE REPLACEMENT THERAPY
     Dates: start: 19990601
  2. PREMPRO [Suspect]
     Indication: HORMONE REPLACEMENT THERAPY
     Dates: start: 20000101, end: 20020201
  3. ORTHO-EST [Suspect]
  4. PROVERA [Suspect]
     Indication: HORMONE REPLACEMENT THERAPY
     Dates: start: 19970101, end: 19981201
  5. PREMARIN [Suspect]
     Indication: HORMONE REPLACEMENT THERAPY
  6. DIOVAN [Concomitant]

REACTIONS (20)
  - ANXIETY [None]
  - BIOPSY BREAST ABNORMAL [None]
  - BREAST CANCER [None]
  - BREAST MICROCALCIFICATION [None]
  - EMOTIONAL DISTRESS [None]
  - HEADACHE [None]
  - HOT FLUSH [None]
  - HYSTEROSCOPY [None]
  - INJURY [None]
  - LYMPHADENECTOMY [None]
  - MAMMOGRAM ABNORMAL [None]
  - MUSCLE INJURY [None]
  - MUSCULOSKELETAL DISORDER [None]
  - NIGHT SWEATS [None]
  - OESTROGEN RECEPTOR ASSAY POSITIVE [None]
  - RADICAL MASTECTOMY [None]
  - SCAR [None]
  - SMEAR CERVIX ABNORMAL [None]
  - UTERINE DILATION AND CURETTAGE [None]
  - UTERINE HAEMORRHAGE [None]
